FAERS Safety Report 7643778-6 (Version None)
Quarter: 2011Q3

REPORT INFORMATION
  Report Type: 
  Country: None (occurrence: None)
  Receive Date: 20110729
  Receipt Date: 20110721
  Transmission Date: 20111222
  Serious: Yes (Hospitalization, Other)
  Sender: FDA-Public Use
  Company Number: US-BAYER-2010-006714

PATIENT
  Age: 21 Year
  Sex: Female
  Weight: 46.259 kg

DRUGS (7)
  1. SEROQUEL [Concomitant]
     Dosage: UNK
     Dates: start: 20060101, end: 20090101
  2. YASMIN [Suspect]
     Indication: PREMENSTRUAL SYNDROME
     Dosage: UNK
     Dates: start: 20030101, end: 20060101
  3. YASMIN [Suspect]
  4. YAZ [Suspect]
     Indication: PREMENSTRUAL SYNDROME
     Dosage: UNK
     Dates: start: 20040101, end: 20090601
  5. PERCOCET [Concomitant]
     Dosage: UNK
     Dates: start: 20060101, end: 20090101
  6. YAZ [Suspect]
     Dosage: UNK
     Dates: start: 20060101, end: 20080101
  7. XANAX [Concomitant]
     Dosage: UNK
     Dates: start: 20060101, end: 20090101

REACTIONS (4)
  - PAIN [None]
  - CHOLECYSTITIS [None]
  - HAEMATEMESIS [None]
  - CHOLECYSTECTOMY [None]
